FAERS Safety Report 4562882-2 (Version None)
Quarter: 2005Q1

REPORT INFORMATION
  Report Type: 
  Country: None (occurrence: None)
  Receive Date: 20050121
  Receipt Date: 20050114
  Transmission Date: 20050727
  Serious: Yes (Hospitalization)
  Sender: FDA-Public Use
  Company Number: FRP05000067

PATIENT
  Age: 82 Year
  Sex: Female

DRUGS (4)
  1. ACTONEL [Suspect]
     Dosage: 35 MG 1/WEEK ORAL
     Route: 048
  2. HUMIRA [Suspect]
     Indication: RHEUMATOID ARTHRITIS
     Dosage: 40 MG 1/WEEK SUBCUTANEOUS
     Route: 058
     Dates: start: 20041101, end: 20041210
  3. PREDNISONE TAB [Suspect]
     Dosage: 10 MG DAILY ORAL
     Route: 048
  4. NOVATREX ^LEDERLE^ (METHOTREXATE) [Suspect]
     Dosage: 2.5 MG 6/WEEK ORAL
     Route: 048
     Dates: start: 20040808

REACTIONS (1)
  - HERPES ZOSTER [None]
